FAERS Safety Report 7590739-1 (Version None)
Quarter: 2011Q3

REPORT INFORMATION
  Report Type: 
  Country: None (occurrence: None)
  Receive Date: 20110705
  Receipt Date: 20110621
  Transmission Date: 20111222
  Serious: Yes (Other)
  Sender: FDA-Public Use
  Company Number: PHHY2011NI55162

PATIENT
  Age: 60 Year
  Sex: Male

DRUGS (4)
  1. DIURETICS [Concomitant]
     Dosage: UNK
  2. CORYOL [Concomitant]
     Dosage: 12.5 MG, BID
     Route: 048
  3. RASILEZ [Suspect]
     Indication: HYPERTENSION
     Dosage: 300 MG, PER DAY
     Route: 048
     Dates: start: 20100901
  4. EXFORGE [Concomitant]
     Dosage: 10/320 MG PER DAY
     Route: 048

REACTIONS (1)
  - CONJUNCTIVAL HAEMORRHAGE [None]
